FAERS Safety Report 9692487 (Version 1)
Quarter: 2013Q4

REPORT INFORMATION
  Report Type: Spontaneous
  Country: US (occurrence: US)
  Receive Date: 20131118
  Receipt Date: 20131118
  Transmission Date: 20140711
  Serious: Yes (Other)
  Sender: FDA-Public Use
  Company Number: US-PFIZER INC-2013325198

PATIENT
  Age: 39 Year
  Sex: Male

DRUGS (3)
  1. NEOMYCIN SULFATE [Suspect]
     Dosage: UNK
  2. POLYMYXIN B SULFATE [Suspect]
     Dosage: UNK
  3. STREPTOMYCIN [Suspect]
     Dosage: UNK

REACTIONS (2)
  - Anaphylactic reaction [Unknown]
  - Drug hypersensitivity [Unknown]
